FAERS Safety Report 12238964 (Version 1)
Quarter: 2016Q2

REPORT INFORMATION
  Report Type: Spontaneous
  Country: US (occurrence: US)
  Receive Date: 20160405
  Receipt Date: 20160405
  Transmission Date: 20160815
  Serious: Yes (Other)
  Sender: FDA-Public Use
  Company Number: US-BAUSCH-BL-2016-007010

PATIENT
  Age: 92 Year
  Sex: Male

DRUGS (2)
  1. LASIX [Concomitant]
     Active Substance: FUROSEMIDE
     Indication: DIURETIC THERAPY
     Route: 065
  2. SOOTHE XP [Suspect]
     Active Substance: LIGHT MINERAL OIL\MINERAL OIL
     Indication: DRY EYE
     Dosage: 2 DROPS IN LEFT EYE AND 2 DROPS IN RIGHT EYE ONCE
     Route: 047
     Dates: start: 20160318, end: 20160318

REACTIONS (4)
  - Epistaxis [Recovering/Resolving]
  - Expired product administered [Unknown]
  - Pneumonia [Recovering/Resolving]
  - Lacrimation increased [Not Recovered/Not Resolved]

NARRATIVE: CASE EVENT DATE: 201603
